FAERS Safety Report 20364275 (Version 1)
Quarter: 2022Q1

REPORT INFORMATION
  Report Type: Spontaneous
  Country: US (occurrence: None)
  Receive Date: 20220121
  Receipt Date: 20220121
  Transmission Date: 20220423
  Serious: Yes (Death)
  Sender: FDA-Public Use
  Company Number: None

PATIENT
  Age: 60 Year
  Sex: Female

DRUGS (1)
  1. TOCILIZUMAB [Suspect]
     Active Substance: TOCILIZUMAB
     Indication: COVID-19
     Dosage: 800 MG ONCE IV?
     Route: 042
     Dates: start: 20211219

REACTIONS (4)
  - Fungal infection [None]
  - Bacterial infection [None]
  - Disease complication [None]
  - Exposure to fungus [None]

NARRATIVE: CASE EVENT DATE: 20211225
